FAERS Safety Report 8677099 (Version 3)
Quarter: 2012Q4

REPORT INFORMATION
  Report Type: 
  Country: US (occurrence: US)
  Receive Date: 20120723
  Receipt Date: 20121121
  Transmission Date: 20130627
  Serious: Yes (Other)
  Sender: FDA-Public Use
  Company Number: US-BAYER-2012-071138

PATIENT
  Age: 23 Year
  Sex: Female

DRUGS (1)
  1. MIRENA [Suspect]
     Indication: CONTRACEPTION
     Dosage: 20 mcg/24hr, CONT
     Route: 015
     Dates: start: 20120511, end: 20120720

REACTIONS (6)
  - Vaginitis bacterial [Recovered/Resolved]
  - Vaginal discharge [Recovered/Resolved]
  - Menometrorrhagia [Recovered/Resolved]
  - Abdominal pain [Recovered/Resolved]
  - Vaginitis bacterial [Recovered/Resolved]
  - Vaginal discharge [Recovered/Resolved]
